FAERS Safety Report 22042222 (Version 1)
Quarter: 2023Q1

REPORT INFORMATION
  Report Type: Spontaneous
  Country: GB (occurrence: GB)
  Receive Date: 20230227
  Receipt Date: 20230227
  Transmission Date: 20230418
  Serious: Yes (Other)
  Sender: FDA-Public Use
  Company Number: GB-SUN PHARMACEUTICAL INDUSTRIES LTD-2023R1-380823

PATIENT
  Age: 39 Year
  Sex: Male

DRUGS (4)
  1. FEBUXOSTAT [Suspect]
     Active Substance: FEBUXOSTAT
     Indication: Gout
     Dosage: UNK (40 MG)
     Route: 048
  2. FEBUXOSTAT [Suspect]
     Active Substance: FEBUXOSTAT
     Dosage: UNK (80 MG)
     Route: 048
  3. FEBUXOSTAT [Suspect]
     Active Substance: FEBUXOSTAT
     Dosage: 120 MILLIGRAM, DAILY
     Route: 048
  4. BENZBROMARONE [Concomitant]
     Active Substance: BENZBROMARONE
     Indication: Gout
     Dosage: 50 MILLIGRAM, DAILY
     Route: 048

REACTIONS (1)
  - Condition aggravated [Unknown]
